FAERS Safety Report 18979589 (Version 1)
Quarter: 2021Q1

REPORT INFORMATION
  Report Type: Spontaneous
  Country: NL (occurrence: NL)
  Receive Date: 20210308
  Receipt Date: 20210308
  Transmission Date: 20210420
  Serious: Yes (Other)
  Sender: FDA-Public Use
  Company Number: NL-SA-2021SA076571

PATIENT
  Age: 56 Year
  Sex: Female

DRUGS (11)
  1. THIAMINE CHLORIDE [THIAMINE HYDROCHLORIDE] [Concomitant]
  2. ACETYLSALICYLZUUR [Concomitant]
     Active Substance: ASPIRIN
  3. ALENDRONINEZUUR [Concomitant]
     Active Substance: ALENDRONIC ACID
     Dosage: 70 MG
  4. FENTANYL. [Concomitant]
     Active Substance: FENTANYL
  5. DIAZEPAM. [Concomitant]
     Active Substance: DIAZEPAM
  6. QUETIAPINE FUMARATE. [Concomitant]
     Active Substance: QUETIAPINE FUMARATE
  7. OMEPRAZOLUM [Concomitant]
  8. SPIRONOLACTONE. [Concomitant]
     Active Substance: SPIRONOLACTONE
  9. DUPILUMAB [Suspect]
     Active Substance: DUPILUMAB
     Indication: ECZEMA
     Dosage: 1X PER 2 WEEKS 300MG
     Dates: start: 202006, end: 20201127
  10. OXYCODONE HYDROCHLORIDE. [Concomitant]
     Active Substance: OXYCODONE HYDROCHLORIDE
  11. CLONIDINE HCL [Concomitant]
     Active Substance: CLONIDINE HYDROCHLORIDE

REACTIONS (1)
  - Cutaneous T-cell lymphoma [Not Recovered/Not Resolved]

NARRATIVE: CASE EVENT DATE: 20201001
